FAERS Safety Report 8458755-5 (Version None)
Quarter: 2012Q2

REPORT INFORMATION
  Report Type: 
  Country: None (occurrence: None)
  Receive Date: 20120622
  Receipt Date: 20120612
  Transmission Date: 20120825
  Serious: Yes (Hospitalization)
  Sender: FDA-Public Use
  Company Number: US-ELI_LILLY_AND_COMPANY-US201009004698

PATIENT
  Sex: Female

DRUGS (17)
  1. FORTEO [Suspect]
     Dosage: 20 UG, QD
     Route: 065
     Dates: start: 20110101
  2. CRESTOR [Concomitant]
     Dosage: UNK, DAILY (1/D)
  3. SYNTHROID [Concomitant]
  4. CALCIUM [Concomitant]
  5. COENZYME Q10 [Concomitant]
  6. LOVAZA [Concomitant]
  7. ARTHROTEC [Concomitant]
  8. FORTEO [Suspect]
     Indication: OSTEOPOROSIS
     Dosage: 20 UG, DAILY (1/D)
     Dates: start: 20100801
  9. DIOVAN [Concomitant]
     Dosage: UNK, DAILY (1/D)
  10. AMBIEN [Concomitant]
     Dosage: UNK, DAILY (1/D)
  11. MAGNESIUM [Concomitant]
  12. MULTI-VITAMIN [Concomitant]
  13. LEVOTHYROXINE [Concomitant]
     Dosage: UNK, DAILY (1/D)
  14. VITAMIN D [Concomitant]
  15. FORTEO [Suspect]
     Dosage: 20 UG, QD
     Dates: start: 20110101
  16. FORTEO [Suspect]
     Dosage: 20 UG, QD
  17. LYRICA [Concomitant]

REACTIONS (7)
  - GRAFT HAEMORRHAGE [None]
  - BLOOD PRESSURE DECREASED [None]
  - PAIN [None]
  - MUSCLE SPASMS [None]
  - IMPAIRED HEALING [None]
  - MUSCLE STRAIN [None]
  - GAIT DISTURBANCE [None]
